FAERS Safety Report 8052639-2 (Version None)
Quarter: 2012Q1

REPORT INFORMATION
  Report Type: 
  Country: None (occurrence: None)
  Receive Date: 20120118
  Receipt Date: 20120111
  Transmission Date: 20120608
  Serious: Yes (Hospitalization)
  Sender: FDA-Public Use
  Company Number: GB-AMGEN-GBRCT2011069864

PATIENT
  Age: 45 Year
  Sex: Female

DRUGS (6)
  1. METOCLOPRAMIDE [Concomitant]
     Dosage: 20 MG, QD
     Route: 048
     Dates: start: 20111209, end: 20111209
  2. PLACEBO [Suspect]
     Indication: BREAST CANCER
     Dates: start: 20110914
  3. BLINDED DENOSUMAB [Suspect]
     Indication: BREAST CANCER
     Dates: start: 20110914
  4. DEXAMETHASONE TAB [Concomitant]
     Dosage: 2 MG, BID
     Route: 048
     Dates: start: 20111209, end: 20111214
  5. DOCETAXEL [Concomitant]
     Dosage: 150 MG, Q3WK
     Route: 042
     Dates: start: 20111209, end: 20111209
  6. RANITIDINE [Concomitant]
     Dosage: 50 MG, BID
     Route: 048
     Dates: start: 20111209, end: 20111223

REACTIONS (1)
  - ABDOMINAL PAIN UPPER [None]
